FAERS Safety Report 8234106-6 (Version None)
Quarter: 2012Q1

REPORT INFORMATION
  Report Type: 
  Country: None (occurrence: None)
  Receive Date: 20120326
  Receipt Date: 20120326
  Transmission Date: 20120608
  Serious: Yes (Other)
  Sender: FDA-Public Use
  Company Number: None

PATIENT
  Sex: Male
  Weight: 86.182 kg

DRUGS (5)
  1. PAXIL [Concomitant]
  2. CLONOPIN [Concomitant]
  3. METHADONE HCL [Suspect]
  4. ZOLOFT [Concomitant]
  5. QUIATIPINE [Concomitant]

REACTIONS (1)
  - TOXICITY TO VARIOUS AGENTS [None]
